FAERS Safety Report 15488905 (Version 2)
Quarter: 2018Q4

REPORT INFORMATION
  Report Type: Spontaneous
  Country: DE (occurrence: DE)
  Receive Date: 20181011
  Receipt Date: 20181031
  Transmission Date: 20190205
  Serious: Yes (Other)
  Sender: FDA-Public Use
  Company Number: DE-PFIZER INC-2018403938

PATIENT
  Age: 57 Year
  Sex: Female
  Weight: 85 kg

DRUGS (4)
  1. ESOMEPRAZOL [ESOMEPRAZOLE] [Concomitant]
     Indication: GASTROOESOPHAGEAL REFLUX DISEASE
     Dosage: 40, 1X/DAY
     Route: 048
  2. VENLAFAXIN HEUMANN [Suspect]
     Active Substance: VENLAFAXINE HYDROCHLORIDE
     Indication: DEPRESSION
     Dosage: 300 (225 + 75)
  3. METOPROLOL. [Concomitant]
     Active Substance: METOPROLOL
     Indication: HYPERTENSION
     Dosage: 23.75, 1X/DAY
     Route: 048
  4. L-THYROXIN [LEVOTHYROXINE] [Concomitant]
     Indication: HYPOTHYROIDISM
     Dosage: 100, 1X/DAY
     Route: 048

REACTIONS (2)
  - Angina pectoris [Unknown]
  - Electrocardiogram T wave inversion [Not Recovered/Not Resolved]

NARRATIVE: CASE EVENT DATE: 20180404
